FAERS Safety Report 6774756-7 (Version None)
Quarter: 2010Q2

REPORT INFORMATION
  Report Type: 
  Country: None (occurrence: None)
  Receive Date: 20100615
  Receipt Date: 20100615
  Transmission Date: 20101027
  Serious: Yes (Other)
  Sender: FDA-Public Use
  Company Number: None

PATIENT
  Sex: Female
  Weight: 104.3273 kg

DRUGS (1)
  1. CIPRODEX [Suspect]
     Indication: EAR INFECTION
     Dosage: 4 DROPS TWICE DAILY TOP
     Route: 061
     Dates: start: 20100526, end: 20100608

REACTIONS (2)
  - BLOOD GLUCOSE INCREASED [None]
  - TYMPANIC MEMBRANE PERFORATION [None]
